FAERS Safety Report 25798086 (Version 2)
Quarter: 2025Q4

REPORT INFORMATION
  Report Type: Report from Study
  Country: JP (occurrence: JP)
  Receive Date: 20250912
  Receipt Date: 20251221
  Transmission Date: 20260118
  Serious: Yes (Other)
  Sender: BIOGEN
  Company Number: JP-BIOGEN-2025BI01323692

PATIENT
  Age: 55 Year
  Sex: Male

DRUGS (1)
  1. QALSODY [Suspect]
     Active Substance: TOFERSEN
     Indication: Familial amyotrophic lateral sclerosis

REACTIONS (1)
  - Spinal epidural haematoma [Not Recovered/Not Resolved]
